FAERS Safety Report 9850353 (Version 1)
Quarter: 2014Q1

REPORT INFORMATION
  Report Type: Spontaneous
  Country: US (occurrence: None)
  Receive Date: 20140127
  Receipt Date: 20140127
  Transmission Date: 20141002
  Serious: Yes (Life-Threatening, Hospitalization)
  Sender: FDA-Public Use
  Company Number: None

PATIENT
  Age: 72 Year
  Sex: Female
  Weight: 130.18 kg

DRUGS (1)
  1. ENOXAPARIN SODIUM [Suspect]
     Indication: COLONOSCOPY
     Dates: start: 20131206, end: 20131212

REACTIONS (1)
  - Haemorrhagic anaemia [None]
